FAERS Safety Report 8072603-7 (Version None)
Quarter: 2012Q1

REPORT INFORMATION
  Report Type: 
  Country: None (occurrence: None)
  Receive Date: 20120126
  Receipt Date: 20120113
  Transmission Date: 20120608
  Serious: Yes (Hospitalization, Disabling, Other)
  Sender: FDA-Public Use
  Company Number: JP-PFIZER INC-2011314994

PATIENT
  Age: 75 Year
  Sex: Male

DRUGS (8)
  1. TICLOPIDINE HYDROCHLORIDE [Concomitant]
     Dosage: UNK
     Route: 048
     Dates: start: 19971203
  2. ALUSA [Concomitant]
     Indication: PROPHYLAXIS
     Dosage: UNK
     Dates: start: 19970903
  3. URIEF [Suspect]
     Indication: NEUROGENIC BLADDER
     Dosage: 4 MG, 2X/DAY
     Route: 048
     Dates: start: 20111124, end: 20111217
  4. LISINOPRIL [Suspect]
     Indication: HYPERTENSION
     Dosage: 10 MG, 2X/DAY
     Route: 048
     Dates: start: 19970903, end: 20111217
  5. NICERGOLINE [Concomitant]
     Indication: HEMIPLEGIA
  6. LIPITOR [Suspect]
     Indication: HYPERLIPIDAEMIA
     Dosage: 10 MG, DAILY
     Route: 048
     Dates: start: 20080601, end: 20111215
  7. NICERGOLINE [Concomitant]
     Indication: CEREBRAL INFARCTION
     Dosage: UNK
     Dates: start: 19970903
  8. ALUSA [Concomitant]
     Indication: CEREBROVASCULAR ACCIDENT PROPHYLAXIS

REACTIONS (13)
  - FALL [None]
  - NEUROGENIC BLADDER [None]
  - CARDIAC FAILURE [None]
  - GAIT DISTURBANCE [None]
  - BLOOD UREA INCREASED [None]
  - HYPOTENSION [None]
  - FIBRIN D DIMER INCREASED [None]
  - MYOGLOBIN BLOOD INCREASED [None]
  - BLOOD CREATININE INCREASED [None]
  - MALAISE [None]
  - RHABDOMYOLYSIS [None]
  - BACK DISORDER [None]
  - MUSCULAR WEAKNESS [None]
